FAERS Safety Report 7736628-0 (Version None)
Quarter: 2011Q3

REPORT INFORMATION
  Report Type: 
  Country: None (occurrence: None)
  Receive Date: 20110908
  Receipt Date: 20110905
  Transmission Date: 20111222
  Serious: Yes (Other)
  Sender: FDA-Public Use
  Company Number: GB-PFIZER INC-2011207705

PATIENT
  Age: 39 Year
  Sex: Male

DRUGS (1)
  1. TRAZODONE HCL [Suspect]
     Indication: DEPRESSION
     Dosage: UNK
     Dates: start: 20110226, end: 20110301

REACTIONS (3)
  - LIVER FUNCTION TEST ABNORMAL [None]
  - CONDITION AGGRAVATED [None]
  - JAUNDICE [None]
